FAERS Safety Report 4346174-2 (Version None)
Quarter: 2004Q2

REPORT INFORMATION
  Report Type: 
  Country: None (occurrence: None)
  Receive Date: 20040426
  Receipt Date: 20030509
  Transmission Date: 20050107
  Serious: Yes (Hospitalization)
  Sender: FDA-Public Use
  Company Number: ZA-BRISTOL-MYERS SQUIBB COMPANY-12279774

PATIENT
  Age: 28 Year
  Sex: Female

DRUGS (3)
  1. EFAVIRENZ TABS [Suspect]
     Indication: HIV INFECTION
     Dosage: THERAPY ONGOING AT CONCEPTION.
     Route: 048
     Dates: start: 20010201
  2. ZIDOVUDINE [Suspect]
     Indication: HIV INFECTION
     Dosage: THERAPY ONGOING AT CONCEPTION.
     Route: 048
     Dates: start: 20010201
  3. LAMIVUDINE [Suspect]
     Indication: HIV INFECTION
     Dosage: THERAPY ONGOING AT CONCEPTION.
     Route: 048
     Dates: start: 20010201

REACTIONS (2)
  - ABORTION INDUCED [None]
  - PREGNANCY [None]
